FAERS Safety Report 16781912 (Version 1)
Quarter: 2019Q3

REPORT INFORMATION
  Report Type: Spontaneous
  Country: DE (occurrence: DE)
  Receive Date: 20190906
  Receipt Date: 20190906
  Transmission Date: 20191005
  Serious: Yes (Other)
  Sender: FDA-Public Use
  Company Number: DE-US-PROVELL PHARMACEUTICALS LLC-9096240

PATIENT
  Age: 66 Year
  Sex: Female
  Weight: 68 kg

DRUGS (4)
  1. EUTHYROX [Suspect]
     Active Substance: LEVOTHYROXINE SODIUM
     Indication: PRODUCT USED FOR UNKNOWN INDICATION
  2. EUTHYROX [Suspect]
     Active Substance: LEVOTHYROXINE SODIUM
     Dates: end: 2019
  3. EUTHYROX [Suspect]
     Active Substance: LEVOTHYROXINE SODIUM
     Dates: end: 20190601
  4. IODIDE [Concomitant]
     Active Substance: IODINE
     Indication: PRODUCT USED FOR UNKNOWN INDICATION

REACTIONS (17)
  - Histamine intolerance [Recovering/Resolving]
  - Stress [Unknown]
  - Toxicity to various agents [Unknown]
  - Pain [Unknown]
  - Lactose intolerance [Recovering/Resolving]
  - Sleep disorder [Recovering/Resolving]
  - Arthropathy [Unknown]
  - Oral discomfort [Recovered/Resolved]
  - Weight decreased [Recovering/Resolving]
  - Hyperhidrosis [Recovering/Resolving]
  - Fructose intolerance [Recovering/Resolving]
  - Restlessness [Recovering/Resolving]
  - Metal poisoning [Recovering/Resolving]
  - Depression [Recovering/Resolving]
  - Feeling hot [Recovering/Resolving]
  - Flushing [Recovered/Resolved]
  - Headache [Recovering/Resolving]

NARRATIVE: CASE EVENT DATE: 2018
